FAERS Safety Report 7053992-9 (Version None)
Quarter: 2010Q4

REPORT INFORMATION
  Report Type: 
  Country: None (occurrence: None)
  Receive Date: 20101020
  Receipt Date: 20101014
  Transmission Date: 20110411
  Serious: Yes (Hospitalization, Other)
  Sender: FDA-Public Use
  Company Number: US-MERCK-1009USA04858

PATIENT
  Age: 58 Year
  Sex: Female

DRUGS (8)
  1. JANUMET [Suspect]
     Indication: DIABETES MELLITUS
     Route: 048
     Dates: start: 20050101
  2. AVACOR [Concomitant]
     Route: 065
  3. NEURONTIN [Concomitant]
     Route: 065
  4. OMEPRAZOLE [Concomitant]
     Route: 065
  5. BONIVA [Concomitant]
     Route: 065
  6. FOSAMAX [Concomitant]
     Route: 048
  7. SINGULAIR [Concomitant]
     Route: 048
  8. ACTONEL [Concomitant]
     Route: 065

REACTIONS (6)
  - BREAST CANCER [None]
  - INAPPROPRIATE SCHEDULE OF DRUG ADMINISTRATION [None]
  - INFLUENZA [None]
  - POST PROCEDURAL COMPLICATION [None]
  - STRESS CARDIOMYOPATHY [None]
  - THYROID CANCER [None]
